FAERS Safety Report 18703247 (Version 2)
Quarter: 2021Q1

REPORT INFORMATION
  Report Type: Spontaneous
  Country: BR (occurrence: BR)
  Receive Date: 20210105
  Receipt Date: 20210121
  Transmission Date: 20210419
  Serious: Yes (Other)
  Sender: FDA-Public Use
  Company Number: NVSC2020BR343278

PATIENT
  Sex: Male

DRUGS (2)
  1. AZORGA [Suspect]
     Active Substance: BRINZOLAMIDE\TIMOLOL MALEATE
     Indication: INTRACRANIAL PRESSURE INCREASED
     Dosage: 6 ML, TID (MORNING, AFTERNOON, NIGHT)
     Route: 047
     Dates: start: 201709
  2. LOSARTAN. [Concomitant]
     Active Substance: LOSARTAN
     Indication: HYPERTENSION
     Dosage: 2 DF, BID ((ONE IN THE MORNING AND ONE AT NIGHT))
     Route: 048

REACTIONS (4)
  - Visual impairment [Unknown]
  - Vision blurred [Unknown]
  - Retinal thickening [Unknown]
  - Dysgraphia [Unknown]

NARRATIVE: CASE EVENT DATE: 2018
